FAERS Safety Report 12069831 (Version 1)
Quarter: 2016Q1

REPORT INFORMATION
  Report Type: Other
  Country: JP (occurrence: JP)
  Receive Date: 20160211
  Receipt Date: 20160211
  Transmission Date: 20160526
  Serious: Yes (Hospitalization)
  Sender: FDA-Public Use
  Company Number: JP-GUERBET LLC-1047687

PATIENT
  Age: 69 Year
  Sex: Male

DRUGS (2)
  1. CISPLATIN. [Concomitant]
     Active Substance: CISPLATIN
  2. LIPIODOL [Suspect]
     Active Substance: ETHIODIZED OIL
     Indication: DRUG THERAPY
     Route: 013

REACTIONS (4)
  - Ileus paralytic [Recovering/Resolving]
  - Off label use [None]
  - Portal vein thrombosis [None]
  - Mesenteric vein thrombosis [Recovering/Resolving]
